FAERS Safety Report 25578221 (Version 1)
Quarter: 2025Q3

REPORT INFORMATION
  Report Type: Spontaneous
  Country: US (occurrence: None)
  Receive Date: 20250718
  Receipt Date: 20250718
  Transmission Date: 20251021
  Serious: No
  Sender: INCYTE
  Company Number: US-INCYTE CORPORATION-2025IN007674

PATIENT
  Age: 84 Year

DRUGS (1)
  1. JAKAFI [Suspect]
     Active Substance: RUXOLITINIB
     Indication: Metastases to lung
     Dosage: 15 MILLIGRAM, Q12H

REACTIONS (2)
  - Skin discolouration [Unknown]
  - Off label use [Unknown]
